FAERS Safety Report 16892391 (Version 1)
Quarter: 2019Q4

REPORT INFORMATION
  Report Type: Spontaneous
  Country: GB (occurrence: GB)
  Receive Date: 20191007
  Receipt Date: 20191007
  Transmission Date: 20200122
  Serious: Yes (Hospitalization)
  Sender: FDA-Public Use
  Company Number: GB-MYLANLABS-2019M1092340

PATIENT
  Age: 64 Year
  Sex: Female
  Weight: 59.25 kg

DRUGS (14)
  1. AMOXICILLIN. [Concomitant]
     Active Substance: AMOXICILLIN
     Dosage: UNK
  2. TRIMBOW [Concomitant]
     Active Substance: BECLOMETHASONE DIPROPIONATE\FORMOTEROL FUMARATE\GLYCOPYRROLATE
     Dosage: UNK
  3. PARACETAMOL [Concomitant]
     Active Substance: ACETAMINOPHEN
     Dosage: UNK
  4. LACTULOSE. [Concomitant]
     Active Substance: LACTULOSE
     Dosage: UNK
  5. SERTRALINE [Suspect]
     Active Substance: SERTRALINE HYDROCHLORIDE
     Dosage: 50 MILLIGRAM, QD (IN THE MORNING)
     Route: 048
     Dates: start: 20190201, end: 20190503
  6. CARBOCISTEINE [Concomitant]
     Active Substance: CARBOCYSTEINE
     Dosage: UNK
  7. DIPYRIDAMOLE. [Concomitant]
     Active Substance: DIPYRIDAMOLE
  8. ALENDRONIC ACID [Concomitant]
     Active Substance: ALENDRONIC ACID
  9. ACETYLSALICYLIC ACID [Concomitant]
     Active Substance: ASPIRIN
     Dosage: UNK
  10. PREDNISOLONE. [Concomitant]
     Active Substance: PREDNISOLONE
  11. ATORVASTATIN [Concomitant]
     Active Substance: ATORVASTATIN
     Dosage: UNK
  12. CO-DYDRAMOL [Concomitant]
     Active Substance: ACETAMINOPHEN\DIHYDROCODEINE
     Dosage: UNK
  13. MORPHINE SULFATE. [Concomitant]
     Active Substance: MORPHINE SULFATE
  14. SALBUTAMOL [Concomitant]
     Active Substance: ALBUTEROL

REACTIONS (5)
  - Cough [Unknown]
  - Lower respiratory tract infection [Unknown]
  - Sputum discoloured [Unknown]
  - Dyspnoea [Unknown]
  - Electrocardiogram QT prolonged [Recovered/Resolved]

NARRATIVE: CASE EVENT DATE: 20190503
